FAERS Safety Report 6963035-0 (Version None)
Quarter: 2010Q3

REPORT INFORMATION
  Report Type: 
  Country: None (occurrence: None)
  Receive Date: 20100831
  Receipt Date: 20100824
  Transmission Date: 20110219
  Serious: Yes (Death)
  Sender: FDA-Public Use
  Company Number: 2010US003130

PATIENT
  Age: 48 Year
  Sex: Male

DRUGS (15)
  1. PROGRAF [Suspect]
     Indication: BONE MARROW TRANSPLANT
     Dates: start: 20090204
  2. PROGRAF [Suspect]
     Indication: PROPHYLAXIS AGAINST GRAFT VERSUS HOST DISEASE
     Dates: start: 20090204
  3. BACTRIM [Concomitant]
  4. PROTONIX [Concomitant]
  5. VFEND [Concomitant]
  6. POTASSIUM CHLORIDE [Concomitant]
  7. PREDNISONE [Concomitant]
  8. CARVEDILOL [Concomitant]
  9. ZYRTEC [Concomitant]
  10. VALTREX [Concomitant]
  11. MAG-OX (MAGNESIUM OXIDE) [Concomitant]
  12. FLAVOXATE [Concomitant]
  13. ZITHROMAX [Concomitant]
  14. NORVASC [Concomitant]
  15. MORPHINE [Concomitant]

REACTIONS (5)
  - BILIARY TRACT DISORDER [None]
  - CHOLESTASIS [None]
  - DISEASE COMPLICATION [None]
  - GRAFT VERSUS HOST DISEASE [None]
  - OFF LABEL USE [None]
